FAERS Safety Report 17694363 (Version 1)
Quarter: 2020Q2

REPORT INFORMATION
  Report Type: Spontaneous
  Country: JP (occurrence: JP)
  Receive Date: 20200422
  Receipt Date: 20200422
  Transmission Date: 20200714
  Serious: Yes (Hospitalization, Other)
  Sender: FDA-Public Use
  Company Number: JP-ASTRAZENECA-2020SE53540

PATIENT
  Age: 38 Year
  Sex: Female

DRUGS (17)
  1. FLUNITRAZEPAM [Suspect]
     Active Substance: FLUNITRAZEPAM
     Dosage: 138 TABLETS
     Route: 065
  2. LEXOTAN [Suspect]
     Active Substance: BROMAZEPAM
     Dosage: SENIRAN
     Route: 065
  3. SEROQUEL [Suspect]
     Active Substance: QUETIAPINE FUMARATE
     Indication: PRODUCT USED FOR UNKNOWN INDICATION
     Dosage: 54 TABLETS
     Route: 048
  4. BROTIZOLAM [Suspect]
     Active Substance: BROTIZOLAM
     Dosage: 139 TABLET
     Route: 065
  5. SEROQUEL [Suspect]
     Active Substance: QUETIAPINE FUMARATE
     Indication: PRODUCT USED FOR UNKNOWN INDICATION
     Route: 048
  6. LEXOTAN [Suspect]
     Active Substance: BROMAZEPAM
     Route: 065
  7. MOSAPRIDE CITRATE [Suspect]
     Active Substance: MOSAPRIDE CITRATE
     Dosage: 2 TABLETS
     Route: 065
  8. SILECE [Suspect]
     Active Substance: FLUNITRAZEPAM
     Indication: PRODUCT USED FOR UNKNOWN INDICATION
     Dosage: 14 TABLETS, UNKNOWN FREQ
     Route: 048
  9. ETHYL LOFLAZEPATE [Suspect]
     Active Substance: ETHYL LOFLAZEPATE
     Dosage: 22 TABLET
     Route: 065
  10. MIANSERIN HYDROCHLORIDE [Suspect]
     Active Substance: MIANSERIN HYDROCHLORIDE
     Dosage: 72 TABLETS
     Route: 065
  11. REFLEX [Suspect]
     Active Substance: MIRTAZAPINE
     Dosage: 15 TABLETS
     Route: 065
  12. EVE A [Suspect]
     Active Substance: APRONALIDE\CAFFEINE\IBUPROFEN
     Route: 065
  13. SEROQUEL [Suspect]
     Active Substance: QUETIAPINE FUMARATE
     Indication: PRODUCT USED FOR UNKNOWN INDICATION
     Dosage: 1 TABLET
     Route: 048
  14. FLUNITRAZEPAM [Suspect]
     Active Substance: FLUNITRAZEPAM
     Dosage: 6 TABLETS
     Route: 065
  15. MIANSERIN HYDROCHLORIDE [Suspect]
     Active Substance: MIANSERIN HYDROCHLORIDE
     Dosage: 7 TABLETS
     Route: 065
  16. FLUNITRAZEPAM [Suspect]
     Active Substance: FLUNITRAZEPAM
     Dosage: SILECE , 14 TABLETS
     Route: 065
  17. SERTRALINE HYDROCHLORIDE. [Suspect]
     Active Substance: SERTRALINE HYDROCHLORIDE
     Dosage: 6 TABLET
     Route: 065

REACTIONS (2)
  - Overdose [Unknown]
  - Altered state of consciousness [Recovering/Resolving]
